FAERS Safety Report 12656739 (Version 1)
Quarter: 2016Q3

REPORT INFORMATION
  Report Type: Spontaneous
  Country: MX (occurrence: MX)
  Receive Date: 20160816
  Receipt Date: 20160816
  Transmission Date: 20161109
  Serious: No
  Sender: FDA-Public Use
  Company Number: MX-B.I. PHARMACEUTICALS,INC./RIDGEFIELD-2016-BI-52895MX

PATIENT
  Age: 46 Year
  Sex: Female

DRUGS (1)
  1. JARDIANZ [Suspect]
     Active Substance: EMPAGLIFLOZIN
     Indication: PRODUCT USED FOR UNKNOWN INDICATION
     Route: 065
     Dates: start: 20160715, end: 20160805

REACTIONS (2)
  - Urine ketone body [Unknown]
  - Blood pH [Unknown]

NARRATIVE: CASE EVENT DATE: 20160804
